FAERS Safety Report 24922536 (Version 1)
Quarter: 2025Q1

REPORT INFORMATION
  Report Type: Report from Study
  Country: MX (occurrence: MX)
  Receive Date: 20250204
  Receipt Date: 20250204
  Transmission Date: 20250409
  Serious: Yes (Other)
  Sender: ABBVIE
  Company Number: MX-ABBVIE-6113662

PATIENT
  Sex: Female
  Weight: 66 kg

DRUGS (1)
  1. UPADACITINIB [Suspect]
     Active Substance: UPADACITINIB
     Indication: Rheumatoid arthritis
     Dosage: FORM STRENGTH 15 MILLIGRAM
     Route: 048
     Dates: start: 20230727, end: 202501

REACTIONS (4)
  - Cholelithiasis [Unknown]
  - Drug ineffective [Unknown]
  - Hepatic pain [Not Recovered/Not Resolved]
  - Arrhythmia [Unknown]
